FAERS Safety Report 10691272 (Version 1)
Quarter: 2014Q4

REPORT INFORMATION
  Report Type: Spontaneous
  Country: US (occurrence: None)
  Receive Date: 20141216
  Receipt Date: 20141216
  Transmission Date: 20150529
  Serious: Yes (Other)
  Sender: FDA-Public Use
  Company Number: 2014012211

PATIENT
  Age: 60 Year
  Sex: Female
  Weight: 61.2 kg

DRUGS (3)
  1. LISINOPRIL (LISINOPRIL) [Concomitant]
     Active Substance: LISINOPRIL
  2. METOPROLOL TARTRATE (METOPROLOL TARTRATE) [Concomitant]
  3. NEUPRO [Suspect]
     Active Substance: ROTIGOTINE
     Indication: PARKINSON^S DISEASE
     Dosage: 1MG/24 HR),
     Route: 062
     Dates: start: 201409, end: 201409

REACTIONS (3)
  - Hypertension [None]
  - Malaise [None]
  - Tremor [None]

NARRATIVE: CASE EVENT DATE: 2014
